FAERS Safety Report 4391104-0 (Version None)
Quarter: 2004Q2

REPORT INFORMATION
  Report Type: 
  Country: None (occurrence: None)
  Receive Date: 20040621
  Receipt Date: 20040127
  Transmission Date: 20050107
  Serious: Yes (Death)
  Sender: FDA-Public Use
  Company Number: USA-2003-0009554

PATIENT
  Age: 39 Year
  Sex: Male

DRUGS (7)
  1. OXYCONTIN [Suspect]
     Dosage: UNK
  2. HYDROCODONE BITARTRATE (SIMILAR TO IND 59,175) (HYDRO (CONT) [Suspect]
     Dosage: UNK
  3. HYDROMORPHONE HCL (SIMILAR TO IND 38,424) (HYDROMORPH [Suspect]
     Dosage: UNK
  4. ALPRAZOLAM (ALPRAZOLM) [Suspect]
  5. CANNABIS (CANNABIS) [Suspect]
     Dosage: UNK
  6. ACETAMINOPHEN [Suspect]
     Dosage: UNK
  7. NICOTINE [Suspect]
     Dosage: UNK

REACTIONS (2)
  - ACCIDENTAL OVERDOSE [None]
  - MULTIPLE DRUG OVERDOSE [None]
